FAERS Safety Report 21444064 (Version 2)
Quarter: 2023Q2

REPORT INFORMATION
  Report Type: Report from Study
  Country: CA (occurrence: CA)
  Receive Date: 20221012
  Receipt Date: 20230402
  Transmission Date: 20230722
  Serious: Yes (Hospitalization, Other)
  Sender: FDA-Public Use
  Company Number: CA-JNJFOC-20220920971

PATIENT
  Age: 59 Year
  Sex: Male
  Weight: 128 kg

DRUGS (1)
  1. REMICADE [Suspect]
     Active Substance: INFLIXIMAB
     Indication: Crohn^s disease
     Dosage: THE PATIENT MISSED APPOINTMENT ON 09-SEP-2022 AND REBOOKED ON 28-SEP-2022.
     Route: 041

REACTIONS (2)
  - Infected dermal cyst [Recovering/Resolving]
  - Cyst rupture [Recovered/Resolved]
